FAERS Safety Report 10151479 (Version 1)
Quarter: 2014Q2

REPORT INFORMATION
  Report Type: Report from Study
  Country: US (occurrence: US)
  Receive Date: 20140502
  Receipt Date: 20140502
  Transmission Date: 20141212
  Serious: Yes (Hospitalization, Other)
  Sender: FDA-Public Use
  Company Number: US-ABBVIE-14P-163-1228762-00

PATIENT
  Sex: Female

DRUGS (8)
  1. HUMIRA [Suspect]
     Indication: SPONDYLITIS
     Route: 058
     Dates: start: 201310
  2. ALBUTEROL [Concomitant]
     Indication: ASTHMA
     Dosage: SOLUTION
  3. FLOVENT [Concomitant]
     Indication: ASTHMA
     Dosage: 220
  4. PRO-AIR [Concomitant]
     Indication: ASTHMA
     Dosage: EVERY FOUR TO SIX HOURS
  5. TRIAMTERENE [Concomitant]
     Indication: HYPERTENSION
  6. NAPROXEN [Concomitant]
     Indication: ARTHRALGIA
  7. AMITRIPTYLINE [Concomitant]
     Indication: INSOMNIA
  8. PANTOPRAZOLE [Concomitant]
     Indication: GASTROOESOPHAGEAL REFLUX DISEASE

REACTIONS (5)
  - Cellulitis [Not Recovered/Not Resolved]
  - Tooth infection [Not Recovered/Not Resolved]
  - Arthropod bite [Not Recovered/Not Resolved]
  - Tooth fracture [Not Recovered/Not Resolved]
  - Toothache [Not Recovered/Not Resolved]
